FAERS Safety Report 14558808 (Version 1)
Quarter: 2018Q1

REPORT INFORMATION
  Report Type: Spontaneous
  Country: US (occurrence: US)
  Receive Date: 20180126
  Receipt Date: 20180126
  Transmission Date: 20180509
  Serious: Yes (Other)
  Sender: FDA-Public Use
  Company Number: None

PATIENT
  Sex: Female
  Weight: 85.5 kg

DRUGS (1)
  1. SOOTHANOL X2 [Suspect]
     Active Substance: CAPSAICIN\MENTHOL
     Dosage: ?          QUANTITY:1 DROP(S);?
     Route: 061
     Dates: start: 20180124, end: 20180124

REACTIONS (1)
  - Application site burn [None]

NARRATIVE: CASE EVENT DATE: 20180124
